FAERS Safety Report 6275153-3 (Version None)
Quarter: 2009Q3

REPORT INFORMATION
  Report Type: 
  Country: None (occurrence: None)
  Receive Date: 20090721
  Receipt Date: 20090713
  Transmission Date: 20100115
  Serious: Yes (Death, Life-Threatening)
  Sender: FDA-Public Use
  Company Number: IE-PFIZER INC-2009201364

PATIENT
  Age: 62 Year

DRUGS (1)
  1. SUTENT [Suspect]
     Indication: METASTATIC RENAL CELL CARCINOMA
     Dosage: 50 MG, 1X/DAY
     Route: 048
     Dates: start: 20090214, end: 20090227

REACTIONS (3)
  - NEUTROPENIC SEPSIS [None]
  - PANCYTOPENIA [None]
  - PNEUMONIA [None]
